FAERS Safety Report 6804588-2 (Version None)
Quarter: 2010Q2

REPORT INFORMATION
  Report Type: 
  Country: None (occurrence: None)
  Receive Date: 20100628
  Receipt Date: 20070413
  Transmission Date: 20101027
  Serious: No
  Sender: FDA-Public Use
  Company Number: US-PFIZER INC-2007030983

PATIENT
  Sex: Female
  Weight: 60.78 kg

DRUGS (3)
  1. XALATAN [Suspect]
     Indication: GLAUCOMA
     Route: 031
  2. FEXOFENADINE [Concomitant]
     Indication: SINUS DISORDER
  3. CEFUROXIME [Concomitant]
     Indication: SINUS DISORDER

REACTIONS (1)
  - OCULAR HYPERAEMIA [None]
